FAERS Safety Report 19514599 (Version 2)
Quarter: 2022Q3

REPORT INFORMATION
  Report Type: Report from Study
  Country: FR (occurrence: FR)
  Receive Date: 20210709
  Receipt Date: 20220929
  Transmission Date: 20221026
  Serious: Yes (Hospitalization, Other)
  Sender: FDA-Public Use
  Company Number: FR-HRARD-202000803

PATIENT
  Age: 53 Year
  Sex: Male
  Weight: 82 kg

DRUGS (27)
  1. ALDACTONE [Suspect]
     Active Substance: SPIRONOLACTONE
     Indication: Hypertension
     Dosage: 100 MG, 1X/DAY
     Route: 048
  2. TAHOR [Interacting]
     Active Substance: ATORVASTATIN CALCIUM
     Indication: Dyslipidaemia
     Dosage: 10 MG, 1X/DAY
     Route: 048
  3. HYDROCHLOROTHIAZIDE\NEBIVOLOL HYDROCHLORIDE [Suspect]
     Active Substance: HYDROCHLOROTHIAZIDE\NEBIVOLOL HYDROCHLORIDE
     Indication: Hypertension
     Dosage: 5 MG, 1X/DAY
     Route: 048
  4. METFORMIN [Suspect]
     Active Substance: METFORMIN HYDROCHLORIDE
     Indication: Diabetes mellitus
     Dosage: 2 G, 1X/DAY
     Route: 048
  5. COVERAM [Suspect]
     Active Substance: AMLODIPINE\PERINDOPRIL
     Indication: Hypertension
     Dosage: 8 MG, 1X/DAY
     Route: 048
  6. KETOCONAZOLE [Interacting]
     Active Substance: KETOCONAZOLE
     Indication: Cushing^s syndrome
     Dosage: 600 MG, 1X/DAY
     Route: 048
     Dates: start: 20200724, end: 20200814
  7. KETOCONAZOLE [Interacting]
     Active Substance: KETOCONAZOLE
     Dosage: 1000 MG, 1X/DAY
     Route: 048
     Dates: start: 20200815, end: 20200819
  8. KETOCONAZOLE [Interacting]
     Active Substance: KETOCONAZOLE
     Dosage: 400 MG, 1X/DAY
     Route: 048
     Dates: start: 20200908, end: 20200914
  9. KETOCONAZOLE [Interacting]
     Active Substance: KETOCONAZOLE
     Dosage: 1000 MG, 1X/DAY
     Route: 048
     Dates: start: 20200915, end: 20200921
  10. KETOCONAZOLE [Interacting]
     Active Substance: KETOCONAZOLE
     Dosage: 800 MG, 1X/DAY
     Route: 048
     Dates: start: 20200922, end: 20201014
  11. KETOCONAZOLE [Interacting]
     Active Substance: KETOCONAZOLE
     Dosage: 400 MG, DAILY
     Route: 048
     Dates: start: 20200910, end: 20200910
  12. KETOCONAZOLE [Interacting]
     Active Substance: KETOCONAZOLE
     Dosage: 600 MG, DAILY
     Route: 048
     Dates: start: 20200911, end: 20200915
  13. KETOCONAZOLE [Interacting]
     Active Substance: KETOCONAZOLE
     Dosage: 1000 MG, DAILY
     Route: 048
     Dates: start: 20200916, end: 20200921
  14. KETOCONAZOLE [Interacting]
     Active Substance: KETOCONAZOLE
     Dosage: 200 MG, DAILY
     Route: 048
     Dates: start: 20200909, end: 20200909
  15. POTASSIUM CHLORIDE [Suspect]
     Active Substance: POTASSIUM CHLORIDE
     Indication: Hypokalaemia
     Dosage: UNK
     Route: 048
  16. FUROSEMIDE [Suspect]
     Active Substance: FUROSEMIDE
     Indication: Cardiac failure
     Dosage: 40 MG, 1X/DAY
     Route: 048
  17. OSILODROSTAT [Interacting]
     Active Substance: OSILODROSTAT
     Indication: Cushing^s syndrome
     Dosage: 30 MG, 1X/DAY
     Route: 048
     Dates: start: 20200903
  18. AMLODIPINE BESYLATE [Concomitant]
     Active Substance: AMLODIPINE BESYLATE
     Indication: Hypertension
     Dosage: 5 MG, 1X/DAY
     Route: 048
  19. NOVORAPID [Concomitant]
     Active Substance: INSULIN ASPART
     Indication: Diabetes mellitus
     Dosage: UNK
  20. FERROUS SULFATE [Concomitant]
     Active Substance: FERROUS SULFATE
     Indication: Anaemia
     Dosage: UNK
  21. JANUVIA [Concomitant]
     Active Substance: SITAGLIPTIN PHOSPHATE
     Indication: Diabetes mellitus
     Dosage: 100 MG, 1X/DAY
     Route: 048
  22. PERINDOPRIL ERBUMINE [Concomitant]
     Active Substance: PERINDOPRIL ERBUMINE
     Indication: Hypertension
     Dosage: 8 MG, 1X/DAY
     Route: 048
  23. CHOLECALCIFEROL [Concomitant]
     Active Substance: CHOLECALCIFEROL
     Indication: Vitamin D deficiency
     Dosage: UNK
  24. PANTOPRAZOLE [Concomitant]
     Active Substance: PANTOPRAZOLE
     Indication: Prophylaxis
     Dosage: 40 MG, 1X/DAY
     Route: 048
  25. KARDEGIC [Concomitant]
     Active Substance: ASPIRIN DL-LYSINE
     Indication: Cardiac failure
     Dosage: 75 MG, 1X/DAY
     Route: 048
  26. RILMENIDINE PHOSPHATE [Concomitant]
     Active Substance: RILMENIDINE PHOSPHATE
     Indication: Hypertension
     Dosage: 1 MG, 1X/DAY
     Route: 048
  27. INSULIN GLARGINE [Concomitant]
     Active Substance: INSULIN GLARGINE
     Indication: Diabetes mellitus
     Dosage: 20 IU, 1X/DAY
     Route: 058

REACTIONS (6)
  - Acute kidney injury [Recovered/Resolved]
  - Hyperkalaemia [Recovered/Resolved]
  - Hypokalaemia [Recovered/Resolved]
  - Labelled drug-drug interaction medication error [Unknown]
  - Drug interaction [Unknown]
  - Drug ineffective [Recovered/Resolved]

NARRATIVE: CASE EVENT DATE: 20200724
